FAERS Safety Report 6236976-X (Version None)
Quarter: 2009Q2

REPORT INFORMATION
  Report Type: 
  Country: None (occurrence: None)
  Receive Date: 20090619
  Receipt Date: 20090427
  Transmission Date: 20091009
  Serious: No
  Sender: FDA-Public Use
  Company Number: US-ASTRAZENECA-2009UW05946

PATIENT
  Age: 25103 Day
  Sex: Male
  Weight: 81.6 kg

DRUGS (9)
  1. SYMBICORT [Suspect]
     Dosage: 160/4.5 UG, 2 PUFFS
     Route: 055
  2. OXYCONTIN [Concomitant]
  3. OXYCODONE HCL [Concomitant]
  4. FELODIPINE [Concomitant]
  5. AVAPRO [Concomitant]
  6. SERTRALINE HYDROCHLORIDE [Concomitant]
  7. ZETIA [Concomitant]
  8. LORAZEPAM [Concomitant]
  9. HYDROCHLOROTHIAZIDE [Concomitant]

REACTIONS (3)
  - DYSPNOEA [None]
  - HICCUPS [None]
  - TREMOR [None]
